FAERS Safety Report 18817549 (Version 2)
Quarter: 2025Q3

REPORT INFORMATION
  Report Type: Spontaneous
  Country: EU (occurrence: EU)
  Receive Date: 20210201
  Receipt Date: 20250709
  Transmission Date: 20251021
  Serious: Yes (Other)
  Sender: MYLAN
  Company Number: EU-EMA-DD-20201201-ABDUL_J-161325

PATIENT
  Age: 27 Year
  Sex: Male

DRUGS (4)
  1. LEVETIRACETAM [Suspect]
     Active Substance: LEVETIRACETAM
     Indication: Myoclonic epilepsy
     Dosage: 2500 MILLIGRAM, QD (THIS DOSE WAS REDUCED TO 2000 MG)
  2. LEVETIRACETAM [Suspect]
     Active Substance: LEVETIRACETAM
     Indication: Seizure
     Dosage: 2000 MILLIGRAM, QD
  3. VALPROIC ACID [Suspect]
     Active Substance: VALPROIC ACID
     Indication: Epilepsy
     Dosage: 2000 MILLIGRAM, QD
  4. VALPROIC ACID [Suspect]
     Active Substance: VALPROIC ACID
     Indication: Myoclonic epilepsy
     Dosage: 1000 MILLIGRAM, QD

REACTIONS (8)
  - Aggression [Recovered/Resolved]
  - Irritability [Recovered/Resolved]
  - Drug abuse [Unknown]
  - Weight increased [Recovered/Resolved]
  - Therapeutic response decreased [Recovered/Resolved]
  - Alopecia [Recovered/Resolved]
  - Withdrawal syndrome [Recovered/Resolved]
  - Therapeutic product effect incomplete [Unknown]
